FAERS Safety Report 8073288-6 (Version None)
Quarter: 2012Q1

REPORT INFORMATION
  Report Type: 
  Country: None (occurrence: None)
  Receive Date: 20120123
  Receipt Date: 20120123
  Transmission Date: 20120608
  Serious: Yes (Hospitalization)
  Sender: FDA-Public Use
  Company Number: None

PATIENT
  Sex: Female
  Weight: 63 kg

DRUGS (2)
  1. CARBOPLATIN [Suspect]
     Dosage: 652 MG
     Dates: end: 20120105
  2. TAXOL [Suspect]
     Dosage: 322 MG
     Dates: end: 20120105

REACTIONS (3)
  - HEART RATE IRREGULAR [None]
  - FATIGUE [None]
  - DYSPNOEA [None]
